FAERS Safety Report 5100829-0 (Version None)
Quarter: 2006Q3

REPORT INFORMATION
  Report Type: 
  Country: None (occurrence: None)
  Receive Date: 20060911
  Receipt Date: 20060831
  Transmission Date: 20061208
  Serious: Yes (Hospitalization)
  Sender: FDA-Public Use
  Company Number: US-JNJFOC-20060900244

PATIENT
  Age: 37 Year
  Sex: Female

DRUGS (3)
  1. REMICADE [Suspect]
     Route: 042
  2. REMICADE [Suspect]
     Indication: CROHN'S DISEASE
     Route: 042
  3. 6-MP [Concomitant]
     Indication: CROHN'S DISEASE

REACTIONS (4)
  - DYSURIA [None]
  - INTRASPINAL ABSCESS [None]
  - MUSCULOSKELETAL PAIN [None]
  - PARAESTHESIA [None]
